FAERS Safety Report 8572443-6 (Version None)
Quarter: 2012Q3

REPORT INFORMATION
  Report Type: 
  Country: None (occurrence: None)
  Receive Date: 20120806
  Receipt Date: 20120723
  Transmission Date: 20120928
  Serious: Yes (Other)
  Sender: FDA-Public Use
  Company Number: KR-ROCHE-1094270

PATIENT

DRUGS (8)
  1. AVASTIN [Suspect]
     Indication: COLORECTAL CANCER METASTATIC
     Dosage: FLUOROURACIL BASED REGIMEN
  2. LEUCOVORIN CALCIUM [Suspect]
     Indication: COLORECTAL CANCER METASTATIC
     Dosage: ON DAY 1
  3. FLUOROURACIL [Suspect]
     Dosage: ON DAY 1
     Route: 041
  4. XELODA [Suspect]
     Indication: COLORECTAL CANCER METASTATIC
  5. AVASTIN [Suspect]
     Dosage: CAPECITABINE-BASED REGIMEN
  6. FLUOROURACIL [Suspect]
     Indication: COLORECTAL CANCER METASTATIC
     Route: 040
  7. IRINOTECAN HYDROCHLORIDE [Suspect]
     Indication: COLORECTAL CANCER METASTATIC
     Dosage: DOSE: 150/180 MG/M2 ON DAY 1
  8. OXALIPLATIN [Suspect]
     Indication: COLORECTAL CANCER METASTATIC
     Dosage: ON DAY 1

REACTIONS (11)
  - VOMITING [None]
  - LEUKOPENIA [None]
  - DIARRHOEA [None]
  - PERIPHERAL SENSORY NEUROPATHY [None]
  - PROTEINURIA [None]
  - NEUTROPENIA [None]
  - PULMONARY EMBOLISM [None]
  - FEBRILE NEUTROPENIA [None]
  - ANAEMIA [None]
  - PALMAR-PLANTAR ERYTHRODYSAESTHESIA SYNDROME [None]
  - MUCOSAL INFLAMMATION [None]
